FAERS Safety Report 4339019-8 (Version None)
Quarter: 2004Q2

REPORT INFORMATION
  Report Type: 
  Country: None (occurrence: None)
  Receive Date: 20040412
  Receipt Date: 20040326
  Transmission Date: 20050107
  Serious: Yes (Hospitalization, Other)
  Sender: FDA-Public Use
  Company Number: 191604

PATIENT
  Age: 48 Year
  Sex: Female
  Weight: 76.2043 kg

DRUGS (3)
  1. AVONEX [Suspect]
     Indication: MULTIPLE SCLEROSIS
     Dosage: 30 MCG QW IM
     Dates: start: 20010601, end: 20030901
  2. AVONEX [Suspect]
     Indication: MULTIPLE SCLEROSIS
     Dosage: 30 MCG QW IM
     Dates: start: 20030901
  3. PREDNISONE [Concomitant]

REACTIONS (8)
  - BLOOD PRESSURE SYSTOLIC INCREASED [None]
  - BREAST CANCER METASTATIC [None]
  - BREAST CANCER STAGE II [None]
  - BREAST CANCER STAGE III [None]
  - FIBROCYSTIC BREAST DISEASE [None]
  - FULL BLOOD COUNT DECREASED [None]
  - HYPERTENSION [None]
  - METASTASES TO LYMPH NODES [None]
